FAERS Safety Report 23679899 (Version 1)
Quarter: 2024Q1

REPORT INFORMATION
  Report Type: Report from Study
  Country: EG (occurrence: EG)
  Receive Date: 20240327
  Receipt Date: 20240327
  Transmission Date: 20240410
  Serious: No
  Sender: FDA-Public Use
  Company Number: EG-SANDOZ-SDZ2024EG032392

PATIENT
  Age: 5 Year
  Sex: Female
  Weight: 13 kg

DRUGS (1)
  1. OMNITROPE [Suspect]
     Active Substance: SOMATROPIN
     Indication: Growth hormone deficiency
     Dosage: 0.4 MG, QD
     Route: 058
     Dates: start: 20220220

REACTIONS (6)
  - Influenza [Recovered/Resolved]
  - Sinusitis [Recovered/Resolved]
  - Expired device used [Not Recovered/Not Resolved]
  - Product administered from unauthorised provider [Recovered/Resolved]
  - Product availability issue [Not Recovered/Not Resolved]
  - Product administration error [Not Recovered/Not Resolved]

NARRATIVE: CASE EVENT DATE: 20220220
